FAERS Safety Report 14009859 (Version 7)
Quarter: 2018Q2

REPORT INFORMATION
  Report Type: Report from Study
  Country: US (occurrence: US)
  Receive Date: 20170925
  Receipt Date: 20180411
  Transmission Date: 20180711
  Serious: Yes (Hospitalization, Other)
  Sender: FDA-Public Use
  Company Number: US-ACTELION-A-US2017-151210

PATIENT
  Age: 55 Year
  Sex: Female
  Weight: 50.79 kg

DRUGS (9)
  1. VELETRI [Suspect]
     Active Substance: EPOPROSTENOL
     Dosage: 20 NG/KG, PER MIN
     Route: 042
  2. VELETRI [Suspect]
     Active Substance: EPOPROSTENOL
     Indication: PULMONARY HYPERTENSION
     Dosage: 16 NG/KG, PER MIN
     Route: 042
  3. VELETRI [Suspect]
     Active Substance: EPOPROSTENOL
     Dosage: 11 NG/KG, PER MIN
     Route: 042
  4. LETAIRIS [Suspect]
     Active Substance: AMBRISENTAN
     Indication: PULMONARY HYPERTENSION
     Dosage: 10 MG, QD
     Route: 048
     Dates: start: 20170109
  5. VELETRI [Suspect]
     Active Substance: EPOPROSTENOL
     Dosage: UNK
     Route: 042
  6. VELETRI [Suspect]
     Active Substance: EPOPROSTENOL
     Dosage: 19 NG/KG, PER MIN
     Route: 042
  7. VELETRI [Suspect]
     Active Substance: EPOPROSTENOL
     Dosage: 20 NG/KG, PER MIN
     Route: 042
  8. SILDENAFIL CITRATE. [Concomitant]
     Active Substance: SILDENAFIL CITRATE
  9. VELETRI [Suspect]
     Active Substance: EPOPROSTENOL
     Dosage: 28 NG/KG, PER MIN
     Route: 042

REACTIONS (22)
  - Hemiparesis [Not Recovered/Not Resolved]
  - Headache [Unknown]
  - Catheter site swelling [Unknown]
  - Bronchitis [Unknown]
  - Pain in extremity [Recovered/Resolved]
  - Pre-existing condition improved [Unknown]
  - Dyspnoea [Unknown]
  - Onychoclasis [Unknown]
  - Movement disorder [Not Recovered/Not Resolved]
  - Catheter site pruritus [Unknown]
  - Pain in jaw [Unknown]
  - Dizziness [Unknown]
  - Application site urticaria [Unknown]
  - Arthritis [Unknown]
  - Hypertension [Unknown]
  - Muscular weakness [Recovered/Resolved]
  - Rectal haemorrhage [Unknown]
  - Myalgia [Unknown]
  - Pain [Not Recovered/Not Resolved]
  - Application site pruritus [Unknown]
  - Nasopharyngitis [Not Recovered/Not Resolved]
  - Exercise tolerance increased [Unknown]
